FAERS Safety Report 5545917-X (Version None)
Quarter: 2007Q4

REPORT INFORMATION
  Report Type: 
  Country: None (occurrence: None)
  Receive Date: 20071123
  Receipt Date: 20061127
  Transmission Date: 20080405
  Serious: Yes (Hospitalization, Other)
  Sender: FDA-Public Use
  Company Number: 32569

PATIENT
  Age: 69 Year
  Sex: Male
  Weight: 78.9259 kg

DRUGS (8)
  1. LEUCOVORIN CALCIUM [Suspect]
     Indication: BILIARY NEOPLASM
     Dosage: 25 MG/M2 X5D/IV
     Route: 042
     Dates: start: 20060410
  2. OSCAL (CALCIUM) [Concomitant]
  3. PREDNISONE TAB [Concomitant]
  4. PREVACID [Concomitant]
  5. MAALOX (ALUMINIUM/MAGNESIUM) [Concomitant]
  6. REGLAN [Concomitant]
  7. COLACE (DOCUSATE) [Concomitant]
  8. TAMSULOSIN HCL [Concomitant]

REACTIONS (2)
  - ABDOMINAL PAIN [None]
  - DIARRHOEA [None]
